FAERS Safety Report 8873874 (Version 1)
Quarter: 2012Q4

REPORT INFORMATION
  Report Type: Report from Study
  Country: ES (occurrence: ES)
  Receive Date: 20121030
  Receipt Date: 20121030
  Transmission Date: 20130627
  Serious: Yes (Hospitalization)
  Sender: FDA-Public Use
  Company Number: PHHO2012ES015476

PATIENT
  Age: 62 Year
  Sex: Male
  Weight: 78.5 kg

DRUGS (7)
  1. LCZ696 [Suspect]
     Indication: CARDIAC FAILURE CHRONIC
     Dosage: 200 mg, BID
     Route: 048
     Dates: start: 20111118, end: 20111214
  2. BLINDED ENALAPRIL [Suspect]
     Indication: CARDIAC FAILURE CHRONIC
     Dosage: No treatment received.
  3. BLINDED LCZ696 [Suspect]
     Indication: CARDIAC FAILURE CHRONIC
     Dosage: No treatment received.
  4. BLINDED NO TREATMENT RECEIVED [Suspect]
     Indication: CARDIAC FAILURE CHRONIC
     Dosage: No treatment received.
  5. FUROSEMIDE [Suspect]
     Indication: CARDIAC FAILURE
     Dosage: 40 mg, BID
     Route: 048
     Dates: start: 20111118, end: 20111214
  6. CARVEDILOL [Suspect]
     Indication: CARDIAC FAILURE
     Dosage: 6.25 mg, BID
     Dates: start: 20111018, end: 20111214
  7. EPLERENONE [Concomitant]
     Indication: CARDIAC FAILURE
     Dosage: 25 mg, UNK
     Route: 048
     Dates: start: 20110920, end: 20111214

REACTIONS (1)
  - Cardiac failure [Recovered/Resolved]
